FAERS Safety Report 4947487-3 (Version None)
Quarter: 2006Q1

REPORT INFORMATION
  Report Type: 
  Country: None (occurrence: None)
  Receive Date: 20060313
  Receipt Date: 20060228
  Transmission Date: 20060701
  Serious: Yes (Other)
  Sender: FDA-Public Use
  Company Number: 2006029962

PATIENT
  Sex: Male
  Weight: 140.6151 kg

DRUGS (7)
  1. VIAGRA [Suspect]
     Indication: ERECTILE DYSFUNCTION
  2. NORTRIPTYLINE (NOTRIPTYLINE) [Concomitant]
  3. WELLBUTRIN [Concomitant]
  4. LASIX [Concomitant]
  5. ARTANE [Concomitant]
  6. MONTELUKAST SODIUM (MONTELUKAST SODIUM) [Concomitant]
  7. HYPNOTICS AND SEDATIVES (HYPNOTICS AND SEDATIVES) [Concomitant]

REACTIONS (9)
  - CARDIAC FAILURE CONGESTIVE [None]
  - CHEST PAIN [None]
  - DIZZINESS [None]
  - DRUG INEFFECTIVE [None]
  - FALL [None]
  - FLATULENCE [None]
  - PAIN [None]
  - PERICARDIAL EFFUSION [None]
  - THROMBOSIS [None]
